FAERS Safety Report 21349134 (Version 2)
Quarter: 2022Q3

REPORT INFORMATION
  Report Type: Spontaneous
  Country: GB (occurrence: GB)
  Receive Date: 20220919
  Receipt Date: 20220929
  Transmission Date: 20221027
  Serious: Yes (Hospitalization, Other)
  Sender: FDA-Public Use
  Company Number: GB-ASTELLAS-2022US033245

PATIENT
  Sex: Male

DRUGS (1)
  1. XTANDI [Suspect]
     Active Substance: ENZALUTAMIDE
     Indication: Product used for unknown indication
     Route: 048

REACTIONS (6)
  - Atrial fibrillation [Unknown]
  - Fall [Recovered/Resolved]
  - Head injury [Unknown]
  - Fall [Unknown]
  - Underdose [Unknown]
  - Off label use [Unknown]
